FAERS Safety Report 8540992-2 (Version None)
Quarter: 2012Q3

REPORT INFORMATION
  Report Type: 
  Country: None (occurrence: None)
  Receive Date: 20120726
  Receipt Date: 20111021
  Transmission Date: 20120928
  Serious: No
  Sender: FDA-Public Use
  Company Number: US-ASTRAZENECA-2011SE48549

PATIENT
  Age: 47 Year
  Sex: Female

DRUGS (1)
  1. SEROQUEL [Suspect]
     Indication: SLEEP DISORDER
     Route: 048

REACTIONS (5)
  - OFF LABEL USE [None]
  - MOOD ALTERED [None]
  - ILL-DEFINED DISORDER [None]
  - VOMITING [None]
  - DRUG INEFFECTIVE FOR UNAPPROVED INDICATION [None]
